FAERS Safety Report 19934615 (Version 1)
Quarter: 2021Q4

REPORT INFORMATION
  Report Type: Spontaneous
  Country: CN (occurrence: CN)
  Receive Date: 20211008
  Receipt Date: 20211008
  Transmission Date: 20220303
  Serious: Yes (Hospitalization)
  Sender: FDA-Public Use
  Company Number: 2021A761453

PATIENT
  Age: 21080 Day
  Sex: Female
  Weight: 67 kg

DRUGS (1)
  1. DAPAGLIFLOZIN [Suspect]
     Active Substance: DAPAGLIFLOZIN
     Indication: Type 2 diabetes mellitus
     Route: 048
     Dates: start: 20210901, end: 20210921

REACTIONS (2)
  - Vulvovaginal pruritus [Recovered/Resolved]
  - Diabetic complication [Unknown]

NARRATIVE: CASE EVENT DATE: 20210720
